FAERS Safety Report 18240712 (Version 1)
Quarter: 2020Q3

REPORT INFORMATION
  Report Type: Spontaneous
  Country: FR (occurrence: FR)
  Receive Date: 20200908
  Receipt Date: 20200908
  Transmission Date: 20201103
  Serious: Yes (Hospitalization)
  Sender: FDA-Public Use
  Company Number: FR-TEVA-2020-FR-1823660

PATIENT
  Age: 94 Year
  Sex: Female
  Weight: 90 kg

DRUGS (6)
  1. IRBESARTAN. [Suspect]
     Active Substance: IRBESARTAN
     Indication: HYPERTENSION
     Route: 048
     Dates: end: 20200802
  2. MONOPROST 50 MICROGRAMMES/ML, COLLYRE EN SOLUTION EN RECIPIENT UNIDOSE [Concomitant]
     Active Substance: LATANOPROST
     Route: 047
  3. JANUMET [Suspect]
     Active Substance: METFORMIN HYDROCHLORIDE\SITAGLIPTIN PHOSPHATE
     Indication: DIABETES MELLITUS
     Dosage: 500/50 MG / DAY
     Route: 048
  4. VENLAFAXINE [Concomitant]
     Active Substance: VENLAFAXINE HYDROCHLORIDE
  5. PRADAXA [Concomitant]
     Active Substance: DABIGATRAN ETEXILATE MESYLATE
     Route: 048
  6. GELTIM LP 1 MG/G, GEL OPHTALMIQUE EN RECIPIENT UNIDOSE [Concomitant]
     Route: 047

REACTIONS (1)
  - Subacute kidney injury [Recovered/Resolved]

NARRATIVE: CASE EVENT DATE: 20200801
